FAERS Safety Report 9696213 (Version 2)
Quarter: 2013Q4

REPORT INFORMATION
  Report Type: Spontaneous
  Country: HU (occurrence: None)
  Receive Date: 20131115
  Receipt Date: 20131122
  Transmission Date: 20140711
  Serious: Yes (Hospitalization)
  Sender: FDA-Public Use
  Company Number: VENL20130006

PATIENT
  Age: 65 Year
  Sex: Male

DRUGS (7)
  1. VENLAFAXINE [Suspect]
     Indication: DEPRESSION
     Dosage: 2 W, 75 MG, 1 IN 1 D, UNKNOWN
     Dates: start: 20120124, end: 201202
  2. MIRTAZAPINE [Suspect]
     Indication: DEPRESSION
     Dosage: UNKNOWN
     Dates: start: 201203, end: 201203
  3. ALPRAZOLAM TABLETS(ALPRAZOLAM)(3 MILLIGRAM, UNKNOWN)(ALPRAZOLAM) [Concomitant]
  4. PIRACETAM(PIRACETAM) (2400 MILLIGRAM, UNKNOWN)(PIRACETAM) [Concomitant]
  5. SELEGILINE(SELEGILINE)(10 MILLIGRAM, UNKNOWN)(SELEGILINE) [Concomitant]
  6. LEVOTHYROXINE SODIUM TABLETS(LEVOTHYROXINE SODIUM) (25 MICROGRAM, UNKNOWN)(LEVOTHYROXINE SODIUM) [Concomitant]
  7. OXYBUTYNIN CHLORIDE TABLETS(OXYBUTYNIN HYDROCHLORIDE)(5 MILLIGRAM, TABLETS)(OXYBUTYNIN HYDROCHLORIDE) [Concomitant]

REACTIONS (4)
  - Hyponatraemia [None]
  - Depression [None]
  - Drug ineffective [None]
  - Unresponsive to stimuli [None]
